FAERS Safety Report 9977669 (Version 2)
Quarter: 2014Q1

REPORT INFORMATION
  Report Type: Report from Study
  Country: US (occurrence: US)
  Receive Date: 20140306
  Receipt Date: 20140306
  Transmission Date: 20141002
  Serious: Yes (Hospitalization)
  Sender: FDA-Public Use
  Company Number: US-ABBVIE-13P-163-1141875-00

PATIENT
  Age: 66 Year
  Sex: Female

DRUGS (3)
  1. HUMIRA [Suspect]
     Indication: PSORIASIS
     Route: 058
     Dates: start: 201108
  2. TRIAMCINOLONE [Concomitant]
     Indication: PSORIASIS
     Dosage: ONCE TO TWICE A DAY
     Route: 061
     Dates: start: 201005
  3. CLOBETASOL [Concomitant]
     Indication: PSORIASIS
     Dosage: ONCE TO TWICE A DAY
     Route: 061
     Dates: start: 201005

REACTIONS (1)
  - Carotid endarterectomy [Unknown]
